FAERS Safety Report 26107117 (Version 1)
Quarter: 2025Q4

REPORT INFORMATION
  Report Type: Spontaneous
  Country: CN (occurrence: CN)
  Receive Date: 20251201
  Receipt Date: 20251201
  Transmission Date: 20260117
  Serious: Yes (Life-Threatening, Hospitalization)
  Sender: ABBVIE
  Company Number: CN-PFIZER INC-PV202500140149

PATIENT
  Age: 69 Year
  Sex: Male

DRUGS (1)
  1. AVIBACTAM\AZTREONAM [Suspect]
     Active Substance: AVIBACTAM\AZTREONAM
     Indication: Pneumonia
     Dosage: UNK
     Route: 042

REACTIONS (2)
  - Coma [Unknown]
  - Cerebral infarction [Unknown]
